FAERS Safety Report 12844302 (Version 1)
Quarter: 2016Q4

REPORT INFORMATION
  Report Type: Spontaneous
  Country: US (occurrence: US)
  Receive Date: 20161013
  Receipt Date: 20161013
  Transmission Date: 20170207
  Serious: No
  Sender: FDA-Public Use
  Company Number: US-ROCHE-1719438

PATIENT
  Sex: Female
  Weight: 64.92 kg

DRUGS (6)
  1. METOPROLOL. [Concomitant]
     Active Substance: METOPROLOL
  2. ESBRIET [Suspect]
     Active Substance: PIRFENIDONE
     Indication: PULMONARY FIBROSIS
     Dosage: FULL DOSE FOR LAST 3 WEEKS
     Route: 048
     Dates: start: 20160123
  3. ESBRIET [Suspect]
     Active Substance: PIRFENIDONE
     Route: 048
     Dates: start: 20160216
  4. PROTOPIC [Concomitant]
     Active Substance: TACROLIMUS
  5. COUMADIN [Concomitant]
     Active Substance: WARFARIN SODIUM
     Dosage: 6MG DAILY
     Route: 065
  6. PRAVASTATIN. [Concomitant]
     Active Substance: PRAVASTATIN
     Indication: BLOOD CHOLESTEROL

REACTIONS (4)
  - Psoriasis [Not Recovered/Not Resolved]
  - Arrhythmia [Not Recovered/Not Resolved]
  - Anticoagulation drug level decreased [Not Recovered/Not Resolved]
  - Fatigue [Unknown]
